FAERS Safety Report 15015039 (Version 1)
Quarter: 2018Q2

REPORT INFORMATION
  Report Type: Spontaneous
  Country: US (occurrence: US)
  Receive Date: 20180530
  Receipt Date: 20180530
  Transmission Date: 20180711
  Serious: No
  Sender: FDA-Public Use
  Company Number: None

PATIENT
  Age: 73 Year
  Sex: Female

DRUGS (25)
  1. LONSURF [Suspect]
     Active Substance: TIPIRACIL HYDROCHLORIDE\TRIFLURIDINE
     Indication: COLON CANCER
     Route: 048
     Dates: start: 20180312
  2. LISINOPRIL. [Concomitant]
     Active Substance: LISINOPRIL
  3. VITAMIN B12 [Concomitant]
     Active Substance: CYANOCOBALAMIN
  4. ATORVASTATIN CALCIUM. [Concomitant]
     Active Substance: ATORVASTATIN CALCIUM
  5. LONSURF [Suspect]
     Active Substance: TIPIRACIL HYDROCHLORIDE\TRIFLURIDINE
     Indication: HEPATIC CANCER
     Route: 048
     Dates: start: 20180312
  6. DIPHEN/ATROP [Concomitant]
     Active Substance: ATROPINE SULFATE\DIPHENOXYLATE
  7. VITAMIN D [Concomitant]
     Active Substance: CHOLECALCIFEROL
  8. XARELTO [Concomitant]
     Active Substance: RIVAROXABAN
  9. GUAIFENESIN-CODEINE [Concomitant]
  10. TRAMADOL. [Concomitant]
     Active Substance: TRAMADOL
  11. METFORMIN [Concomitant]
     Active Substance: METFORMIN HYDROCHLORIDE
  12. VITAMIN C [Concomitant]
     Active Substance: ASCORBIC ACID
  13. PROAIR HFA [Concomitant]
     Active Substance: ALBUTEROL SULFATE
  14. CIPROFLOXACIN. [Concomitant]
     Active Substance: CIPROFLOXACIN
  15. AMLODIPINE [Concomitant]
     Active Substance: AMLODIPINE BESYLATE
  16. OPIUM TINCTURE [Concomitant]
     Active Substance: MORPHINE
  17. LEVOTHYROXIN [Concomitant]
     Active Substance: LEVOTHYROXINE
  18. ALLOPURINOL. [Concomitant]
     Active Substance: ALLOPURINOL
  19. LYRICA [Concomitant]
     Active Substance: PREGABALIN
  20. MINOCYCLINE [Concomitant]
     Active Substance: MINOCYCLINE\MINOCYCLINE HYDROCHLORIDE
  21. MICONAZOLE. [Concomitant]
     Active Substance: MICONAZOLE
  22. METOPROLOL TARTRATE. [Concomitant]
     Active Substance: METOPROLOL TARTRATE
  23. LANTUS [Concomitant]
     Active Substance: INSULIN GLARGINE
  24. FUROSEMIDE. [Concomitant]
     Active Substance: FUROSEMIDE
  25. TYLENOL [Concomitant]
     Active Substance: ACETAMINOPHEN

REACTIONS (1)
  - Skin ulcer [None]

NARRATIVE: CASE EVENT DATE: 20180529
